FAERS Safety Report 4500527-8 (Version None)
Quarter: 2004Q4

REPORT INFORMATION
  Report Type: 
  Country: None (occurrence: None)
  Receive Date: 20041112
  Receipt Date: 20041112
  Transmission Date: 20050328
  Serious: No
  Sender: FDA-Public Use
  Company Number: None

PATIENT
  Sex: Female

DRUGS (1)
  1. FLUOXETINE [Suspect]
     Indication: MAJOR DEPRESSION
     Dosage: 40 MG PO
     Route: 048
     Dates: start: 20021112

REACTIONS (3)
  - ABDOMINAL DISCOMFORT [None]
  - FAECAL INCONTINENCE [None]
  - PHARMACEUTICAL PRODUCT COMPLAINT [None]
